FAERS Safety Report 9735832 (Version 3)
Quarter: 2015Q3

REPORT INFORMATION
  Report Type: Spontaneous
  Country: US (occurrence: US)
  Receive Date: 20131206
  Receipt Date: 20150804
  Transmission Date: 20151125
  Serious: Yes (Other)
  Sender: FDA-Public Use
  Company Number: US-GILEAD-2009-0023779

PATIENT
  Age: 46 Year
  Sex: Female

DRUGS (12)
  1. ZEMPLAR [Concomitant]
     Active Substance: PARICALCITOL
  2. MICARDIS [Concomitant]
     Active Substance: TELMISARTAN
  3. ALBUTEROL. [Concomitant]
     Active Substance: ALBUTEROL
  4. NEXIUM [Concomitant]
     Active Substance: ESOMEPRAZOLE MAGNESIUM
  5. VIGAMOX [Concomitant]
     Active Substance: MOXIFLOXACIN HYDROCHLORIDE
  6. LETAIRIS [Suspect]
     Active Substance: AMBRISENTAN
     Indication: PULMONARY ARTERIAL HYPERTENSION
     Route: 048
     Dates: start: 20080717
  7. URSODIOL. [Concomitant]
     Active Substance: URSODIOL
  8. NIFEDIPINE. [Concomitant]
     Active Substance: NIFEDIPINE
  9. PROCRIT [Concomitant]
     Active Substance: ERYTHROPOIETIN
  10. EVOXAC [Concomitant]
     Active Substance: CEVIMELINE HYDROCHLORIDE
  11. XANAX [Concomitant]
     Active Substance: ALPRAZOLAM
  12. ASTEPRO [Concomitant]
     Active Substance: AZELASTINE HYDROCHLORIDE

REACTIONS (1)
  - Anaemia [Not Recovered/Not Resolved]
